FAERS Safety Report 14912048 (Version 2)
Quarter: 2018Q3

REPORT INFORMATION
  Report Type: Spontaneous
  Country: US (occurrence: US)
  Receive Date: 20180518
  Receipt Date: 20180801
  Transmission Date: 20181010
  Serious: No
  Sender: FDA-Public Use
  Company Number: US-PFIZER INC-2018201145

PATIENT
  Age: 45 Year
  Sex: Female
  Weight: 90.7 kg

DRUGS (4)
  1. GENOTROPIN [Suspect]
     Active Substance: SOMATROPIN
     Indication: GROWTH HORMONE DEFICIENCY
     Dosage: 1 MG, DAILY
     Route: 058
  2. FLUDROCORTISONE [Suspect]
     Active Substance: FLUDROCORTISONE
     Dosage: UNK
  3. GENOTROPIN [Suspect]
     Active Substance: SOMATROPIN
     Dosage: 0.8 MG, UNK
  4. DESMOPRESSIN ACETATE. [Suspect]
     Active Substance: DESMOPRESSIN ACETATE
     Dosage: UNK

REACTIONS (5)
  - Extra dose administered [Unknown]
  - Intentional dose omission [Unknown]
  - Urinary incontinence [Unknown]
  - Pollakiuria [Unknown]
  - Fluid retention [Recovered/Resolved]
